FAERS Safety Report 5319620-5 (Version None)
Quarter: 2007Q2

REPORT INFORMATION
  Report Type: 
  Country: None (occurrence: None)
  Receive Date: 20070503
  Receipt Date: 20070423
  Transmission Date: 20071010
  Serious: Yes (Other)
  Sender: FDA-Public Use
  Company Number: 2007RR-07008

PATIENT
  Age: 45 Year
  Sex: Female

DRUGS (1)
  1. ENALAPRIL MALEATE [Suspect]
     Indication: HYPERTENSION
     Dosage: 10 MG, QD

REACTIONS (2)
  - LICHENOID KERATOSIS [None]
  - SKIN HYPERPIGMENTATION [None]
